FAERS Safety Report 7865966-6 (Version None)
Quarter: 2011Q4

REPORT INFORMATION
  Report Type: 
  Country: None (occurrence: None)
  Receive Date: 20111028
  Receipt Date: 20110323
  Transmission Date: 20120403
  Serious: No
  Sender: FDA-Public Use
  Company Number: US-GLAXOSMITHKLINE-A0920590A

PATIENT
  Age: 60 Year
  Sex: Female

DRUGS (6)
  1. ALBUTEROL [Suspect]
     Indication: ASTHMA
     Route: 055
  2. PROVENTIL [Concomitant]
  3. CLONAZEPAM [Concomitant]
  4. ASMANEX TWISTHALER [Concomitant]
  5. ADVAIR DISKUS 100/50 [Suspect]
     Indication: ASTHMA
     Dosage: 1PUFF TWICE PER DAY
     Route: 055
     Dates: start: 20040101, end: 20090901
  6. FLOVENT [Suspect]
     Indication: ASTHMA
     Dosage: 1PUFF TWICE PER DAY
     Route: 055
     Dates: start: 20110408

REACTIONS (10)
  - FEELING JITTERY [None]
  - FEELING ABNORMAL [None]
  - ANGER [None]
  - INSOMNIA [None]
  - TREMOR [None]
  - CANDIDIASIS [None]
  - THROAT IRRITATION [None]
  - SLEEP DISORDER [None]
  - ORAL DISCOMFORT [None]
  - CHEST PAIN [None]
